FAERS Safety Report 6524220-5 (Version None)
Quarter: 2009Q4

REPORT INFORMATION
  Report Type: 
  Country: None (occurrence: None)
  Receive Date: 20091230
  Receipt Date: 20091230
  Transmission Date: 20100525
  Serious: Yes (Other)
  Sender: FDA-Public Use
  Company Number: None

PATIENT
  Sex: Female
  Weight: 79.8331 kg

DRUGS (2)
  1. LIDODERM [Suspect]
     Indication: MUSCULOSKELETAL PAIN
     Dosage: LIDOCAINE PATCH USED X 1 ONLY DERM
     Dates: start: 20091213
  2. LIDODERM [Suspect]
     Indication: NECK PAIN
     Dosage: LIDOCAINE PATCH USED X 1 ONLY DERM
     Dates: start: 20091213

REACTIONS (1)
  - VERTIGO [None]
